FAERS Safety Report 16776294 (Version 1)
Quarter: 2019Q3

REPORT INFORMATION
  Report Type: Report from Study
  Country: MX (occurrence: MX)
  Receive Date: 20190905
  Receipt Date: 20190905
  Transmission Date: 20191005
  Serious: Yes (Other)
  Sender: FDA-Public Use
  Company Number: MX-MYLANLABS-2019M1082972

PATIENT
  Age: 28 Year
  Sex: Male

DRUGS (1)
  1. DYMISTA D [Suspect]
     Active Substance: AZELASTINE HYDROCHLORIDE\FLUTICASONE PROPIONATE
     Indication: RHINITIS ALLERGIC
     Dosage: 1 SPRAY, 12 TIMES
     Route: 045
     Dates: start: 20190602

REACTIONS (3)
  - Traumatic haemorrhage [Recovered/Resolved]
  - Nasal oedema [Recovered/Resolved]
  - Injury [Recovered/Resolved]

NARRATIVE: CASE EVENT DATE: 20190802
